FAERS Safety Report 6479302-3 (Version None)
Quarter: 2009Q4

REPORT INFORMATION
  Report Type: 
  Country: None (occurrence: None)
  Receive Date: 20091207
  Receipt Date: 20090219
  Transmission Date: 20100525
  Serious: No
  Sender: FDA-Public Use
  Company Number: US-AMGEN-KDL334878

PATIENT
  Sex: Female

DRUGS (3)
  1. ENBREL [Suspect]
     Indication: RHEUMATOID ARTHRITIS
     Route: 058
  2. SULFASALAZINE [Concomitant]
  3. METHOTREXATE [Concomitant]

REACTIONS (3)
  - RHEUMATOID ARTHRITIS [None]
  - RHEUMATOID NODULE [None]
  - THROAT IRRITATION [None]
